FAERS Safety Report 5584539-1 (Version None)
Quarter: 2008Q1

REPORT INFORMATION
  Report Type: 
  Country: None (occurrence: None)
  Receive Date: 20080108
  Receipt Date: 20071227
  Transmission Date: 20080703
  Serious: Yes (Other)
  Sender: FDA-Public Use
  Company Number: DK-ELI_LILLY_AND_COMPANY-DK200712002300

PATIENT
  Age: 47 Year
  Sex: Male
  Weight: 88 kg

DRUGS (5)
  1. STRATTERA [Suspect]
     Indication: ATTENTION DEFICIT/HYPERACTIVITY DISORDER
     Dosage: 40 MG, UNK
     Route: 048
  2. STRATTERA [Suspect]
     Dosage: 40 MG, EACH MORNING
     Route: 048
     Dates: start: 20061214, end: 20071128
  3. ZOLOFT [Concomitant]
     Indication: DEPRESSION
     Dosage: 50 MG, UNKNOWN
  4. EDRONAX [Concomitant]
     Indication: DEPRESSION
     Dosage: 8 MG, UNK
  5. NSAID'S [Concomitant]
     Dosage: UNK, UNKNOWN
     Dates: start: 20060101

REACTIONS (1)
  - HYPERTENSION [None]
